FAERS Safety Report 8069624-7 (Version None)
Quarter: 2012Q1

REPORT INFORMATION
  Report Type: 
  Country: None (occurrence: None)
  Receive Date: 20120119
  Receipt Date: 20111027
  Transmission Date: 20120608
  Serious: No
  Sender: FDA-Public Use
  Company Number: USA/USA/11/0021768

PATIENT
  Age: 25 Year
  Sex: Female
  Weight: 115.2136 kg

DRUGS (1)
  1. RANITIDINE HYDROCHLORIDE [Suspect]
     Indication: ANTACID THERAPY
     Dosage: 150 MG, 2 IN 1 D
     Dates: start: 20110927

REACTIONS (2)
  - PRODUCT QUALITY ISSUE [None]
  - DRUG INEFFECTIVE [None]
